FAERS Safety Report 9384405 (Version 2)
Quarter: 2013Q3

REPORT INFORMATION
  Report Type: Spontaneous
  Country: GB (occurrence: GB)
  Receive Date: 20130705
  Receipt Date: 20130920
  Transmission Date: 20140515
  Serious: Yes (Death, Life-Threatening, Hospitalization, Other)
  Sender: FDA-Public Use
  Company Number: PHFR2013GB003806

PATIENT
  Age: 38 Year
  Sex: Male

DRUGS (1)
  1. CLOZARIL [Suspect]
     Indication: SCHIZOPHRENIA, PARANOID TYPE
     Dosage: 200 MG, DAILY
     Route: 048
     Dates: start: 20031128

REACTIONS (3)
  - Peritonitis [Fatal]
  - Umbilical hernia [Recovered/Resolved]
  - Abdominal strangulated hernia [Recovered/Resolved]
